FAERS Safety Report 16715998 (Version 1)
Quarter: 2019Q3

REPORT INFORMATION
  Report Type: Spontaneous
  Country: US (occurrence: US)
  Receive Date: 20190819
  Receipt Date: 20190819
  Transmission Date: 20191005
  Serious: No
  Sender: FDA-Public Use
  Company Number: US-PFIZER INC-2019352201

PATIENT
  Age: 72 Year
  Sex: Female

DRUGS (1)
  1. ZOLOFT [Suspect]
     Active Substance: SERTRALINE HYDROCHLORIDE
     Dosage: UNK( 50MG-100MG )

REACTIONS (6)
  - Diplopia [Unknown]
  - Palpitations [Unknown]
  - Drug intolerance [Unknown]
  - Vision blurred [Unknown]
  - Drug hypersensitivity [Unknown]
  - Chest pain [Unknown]
